FAERS Safety Report 24960952 (Version 1)
Quarter: 2025Q1

REPORT INFORMATION
  Report Type: Spontaneous
  Country: US (occurrence: None)
  Receive Date: 20250211
  Receipt Date: 20250211
  Transmission Date: 20250409
  Serious: Yes (Other)
  Sender: FDA-CTU
  Company Number: None

PATIENT
  Age: 23 Year
  Sex: Female

DRUGS (1)
  1. XOLAIR [Suspect]
     Active Substance: OMALIZUMAB
     Indication: Asthma
     Dates: start: 20250127

REACTIONS (5)
  - Chest pain [None]
  - Middle insomnia [None]
  - Arthralgia [None]
  - Hyperhidrosis [None]
  - Paraesthesia [None]

NARRATIVE: CASE EVENT DATE: 20250210
